FAERS Safety Report 9126012 (Version 1)
Quarter: 2013Q1

REPORT INFORMATION
  Report Type: Spontaneous
  Country: US (occurrence: US)
  Receive Date: 20130121
  Receipt Date: 20130121
  Transmission Date: 20140127
  Serious: No
  Sender: FDA-Public Use
  Company Number: US-PFIZER INC-2013020172

PATIENT
  Age: 51 Year
  Sex: Female

DRUGS (2)
  1. CARBOPLATIN [Suspect]
     Dosage: UNK
     Dates: start: 20110711, end: 20110824
  2. ALIMTA [Suspect]
     Dosage: UNK
     Dates: start: 20110711, end: 20110824

REACTIONS (4)
  - Disease progression [Unknown]
  - Neoplasm malignant [Unknown]
  - Condition aggravated [Unknown]
  - Bone lesion [Unknown]
